FAERS Safety Report 19068994 (Version 1)
Quarter: 2021Q1

REPORT INFORMATION
  Report Type: Spontaneous
  Country: US (occurrence: US)
  Receive Date: 20210326
  Receipt Date: 20210326
  Transmission Date: 20210420
  Serious: Yes (Other)
  Sender: FDA-Public Use
  Company Number: None

PATIENT
  Age: 64 Year
  Sex: Male

DRUGS (7)
  1. CRESTOR [Concomitant]
     Active Substance: ROSUVASTATIN CALCIUM
  2. LOVASTATIN. [Concomitant]
     Active Substance: LOVASTATIN
  3. ZETIA [Concomitant]
     Active Substance: EZETIMIBE
     Dates: start: 2016
  4. ROSAVASTATIN [Concomitant]
  5. TRICOR [Concomitant]
     Active Substance: FENOFIBRATE
     Dates: start: 2007
  6. LIPITOR [Suspect]
     Active Substance: ATORVASTATIN CALCIUM
     Indication: HYPERCHOLESTEROLAEMIA
     Dates: start: 2003
  7. ROSUVASTATIN. [Concomitant]
     Active Substance: ROSUVASTATIN

REACTIONS (4)
  - Rash [None]
  - Myalgia [None]
  - Burning sensation [None]
  - Muscle spasms [None]
